FAERS Safety Report 5306009-8 (Version None)
Quarter: 2007Q2

REPORT INFORMATION
  Report Type: 
  Country: None (occurrence: None)
  Receive Date: 20070424
  Receipt Date: 20070418
  Transmission Date: 20071010
  Serious: Yes (Hospitalization)
  Sender: FDA-Public Use
  Company Number: US-ROCHE-480781

PATIENT
  Age: 40 Year
  Sex: Male
  Weight: 70 kg

DRUGS (12)
  1. PEG-INTERFERON ALFA 2A (RO 25-8310) [Suspect]
     Dosage: DOSAGE FORM REPORTED AS VIAL.  DATE OF LAST DOSE PRIOR TO SAE WAS REPORTED AS 26 JAN 2007.
     Route: 058
     Dates: start: 20070112
  2. RIBAVIRIN [Suspect]
     Route: 048
     Dates: start: 20070112, end: 20070128
  3. RIBAVIRIN [Suspect]
     Route: 048
     Dates: start: 20070209
  4. IBUPROFEN [Concomitant]
     Dosage: DRUG NAME: IBUPROFEN S
     Dates: start: 20070112
  5. PEGFILGRASTIM [Concomitant]
     Dates: start: 20070124, end: 20070124
  6. BUPROPION HCL [Concomitant]
     Dates: start: 20050907
  7. VARDENAFIL HYDROCHLORIDE [Concomitant]
     Dates: start: 20060129
  8. EFAVIRENZ [Concomitant]
     Dates: start: 20061122
  9. EMTRICITABINE [Concomitant]
     Dates: start: 20061122
  10. TENOFOVIR [Concomitant]
     Dates: start: 20061122
  11. KETOCONAZOLE [Concomitant]
     Dates: start: 20061122
  12. DOCUSATE [Concomitant]
     Dates: start: 20070129, end: 20070207

REACTIONS (1)
  - STAPHYLOCOCCAL ABSCESS [None]
